FAERS Safety Report 21140894 (Version 1)
Quarter: 2022Q3

REPORT INFORMATION
  Report Type: Spontaneous
  Country: US (occurrence: US)
  Receive Date: 20220728
  Receipt Date: 20220728
  Transmission Date: 20221027
  Serious: No
  Sender: FDA-Public Use
  Company Number: US-BoehringerIngelheim-2022-BI-184131

PATIENT
  Age: 73 Year
  Sex: Male

DRUGS (1)
  1. JARDIANCE [Suspect]
     Active Substance: EMPAGLIFLOZIN
     Indication: Blood glucose decreased
     Dates: start: 20220722, end: 20220727

REACTIONS (4)
  - Asthenia [Unknown]
  - Dizziness [Unknown]
  - Cardiac disorder [Unknown]
  - Chest pain [Unknown]

NARRATIVE: CASE EVENT DATE: 20220722
